FAERS Safety Report 7546008-9 (Version None)
Quarter: 2011Q2

REPORT INFORMATION
  Report Type: 
  Country: None (occurrence: None)
  Receive Date: 20110614
  Receipt Date: 20110601
  Transmission Date: 20111010
  Serious: Yes (Other)
  Sender: FDA-Public Use
  Company Number: PHHY2010JP52707

PATIENT
  Sex: Male

DRUGS (16)
  1. LOXONIN [Concomitant]
     Indication: METASTATIC RENAL CELL CARCINOMA
     Dosage: 120 MG, UNK
     Route: 048
     Dates: start: 20100107
  2. LAC B [Concomitant]
     Dosage: 3 G, UNK
     Route: 048
     Dates: start: 20100506
  3. LASIX [Concomitant]
     Dosage: 40 MG, UNK
     Route: 048
     Dates: start: 20100506, end: 20100610
  4. CANDESARTAN CILEXETIL [Concomitant]
     Dosage: 4 MG, UNK
     Route: 048
     Dates: start: 20100125
  5. SORAFENIB TOSILATE [Concomitant]
     Indication: METASTATIC RENAL CELL CARCINOMA
     Dosage: 800 MG, UNK
     Route: 048
     Dates: start: 20091228, end: 20100310
  6. AFINITOR [Suspect]
     Indication: METASTATIC RENAL CELL CARCINOMA
     Dosage: 10 MG, DAILY
     Route: 048
     Dates: start: 20100312, end: 20100324
  7. SUNITINIB MALATE [Concomitant]
     Indication: METASTATIC RENAL CELL CARCINOMA
     Dosage: 50 MG, UNK
     Route: 048
     Dates: start: 20090928, end: 20091204
  8. DEPAS [Concomitant]
     Indication: AUTONOMIC NERVOUS SYSTEM IMBALANCE
     Dosage: 0.5 MG, UNK
     Route: 048
     Dates: start: 20091228
  9. CALCIUM LACTATE AND PREPARATIONS [Concomitant]
     Indication: METASTATIC RENAL CELL CARCINOMA
     Dosage: 3 G, UNK
     Route: 048
     Dates: start: 20091228
  10. PURSENNID [Concomitant]
     Indication: CONSTIPATION
     Dosage: 12 MG, UNK
     Route: 048
     Dates: start: 20091228
  11. NORVASC [Concomitant]
     Indication: HYPERTENSION
     Dosage: 5 MG, UNK
     Route: 048
     Dates: start: 20100107, end: 20100324
  12. OXYCONTIN [Concomitant]
     Indication: METASTATIC RENAL CELL CARCINOMA
     Dosage: 50 MG, UNK
     Route: 048
     Dates: start: 20091228
  13. CYTOTEC [Concomitant]
     Dosage: 400 MG, UNK
     Route: 048
     Dates: start: 20100107
  14. FERROUS CITRATE [Concomitant]
     Dosage: 200 MG, UNK
     Route: 048
  15. KETOPROFEN [Concomitant]
     Route: 062
     Dates: start: 20100506
  16. AFINITOR [Suspect]
     Dosage: 10 MG, DAILY
     Route: 048
     Dates: start: 20100506, end: 20100529

REACTIONS (2)
  - PLATELET COUNT DECREASED [None]
  - HAEMOGLOBIN DECREASED [None]
